FAERS Safety Report 5683466-9 (Version None)
Quarter: 2008Q1

REPORT INFORMATION
  Report Type: 
  Country: None (occurrence: None)
  Receive Date: 20080326
  Receipt Date: 20080317
  Transmission Date: 20080703
  Serious: Yes (Hospitalization)
  Sender: FDA-Public Use
  Company Number: E2020-02461-SPO-FR

PATIENT
  Age: 85 Year
  Sex: Female

DRUGS (11)
  1. ARICEPT [Suspect]
     Indication: DEMENTIA ALZHEIMER'S TYPE
     Dosage: 5 MG, 1 IN 1 D, ORAL; 10 MG, ORAL
     Route: 048
     Dates: start: 20060101, end: 20080204
  2. ARICEPT [Suspect]
     Indication: DEMENTIA ALZHEIMER'S TYPE
     Dosage: 5 MG, 1 IN 1 D, ORAL; 10 MG, ORAL
     Route: 048
     Dates: start: 20080205, end: 20080226
  3. MEMANTINE HCL [Suspect]
     Indication: DEMENTIA ALZHEIMER'S TYPE
     Dosage: 5 MG, 1 IN 1 D, ORAL; 10 MG, ORAL
     Route: 048
     Dates: start: 20080207, end: 20080225
  4. MEMANTINE HCL [Suspect]
     Indication: DEMENTIA ALZHEIMER'S TYPE
     Dosage: 5 MG, 1 IN 1 D, ORAL; 10 MG, ORAL
     Route: 048
     Dates: start: 20080226
  5. DIGOXIN [Concomitant]
  6. LEVOTHYROXINE SODIUM [Concomitant]
  7. DESLORATADINE [Concomitant]
  8. KARDEGIC (ACETYLSALICYLATE LYSINE) [Concomitant]
  9. PANTOPRAZOLE SODIUM [Concomitant]
  10. STERDEX (STER-DEX) [Concomitant]
  11. VITAMIN A DULCIS (RETINOL) [Concomitant]

REACTIONS (5)
  - ABNORMAL BEHAVIOUR [None]
  - GENERAL PHYSICAL HEALTH DETERIORATION [None]
  - MONOPLEGIA [None]
  - NERVOUS SYSTEM DISORDER [None]
  - SYNCOPE [None]
